FAERS Safety Report 10178359 (Version 2)
Quarter: 2014Q2

REPORT INFORMATION
  Report Type: Spontaneous
  Country: GB (occurrence: GB)
  Receive Date: 20140519
  Receipt Date: 20140520
  Transmission Date: 20141212
  Serious: Yes (Life-Threatening, Hospitalization, Other)
  Sender: FDA-Public Use
  Company Number: GB-BAYER-2014-067358

PATIENT
  Age: 1 Year
  Sex: Male

DRUGS (12)
  1. CIPROFLOXACIN [Suspect]
     Indication: SKIN INFECTION
     Dosage: UNK
     Dates: start: 201311, end: 201311
  2. CIPROFLOXACIN [Suspect]
     Indication: SKIN INFECTION
     Dosage: UNK
     Dates: start: 201402
  3. DOMPERIDONE [Concomitant]
  4. FOLIC ACID [Concomitant]
  5. IBUPROFEN [Concomitant]
  6. MORPHINE [Concomitant]
  7. PARACETAMOL [Concomitant]
  8. PHENOBARBITAL [Concomitant]
  9. RANITIDINE [Concomitant]
  10. VITAMIN D [Concomitant]
  11. VITAMIN E [Concomitant]
  12. VITAMIN K [Concomitant]

REACTIONS (12)
  - Respiratory arrest [Recovered/Resolved]
  - Apparent death [Recovered/Resolved]
  - Haematochezia [Recovered/Resolved]
  - Eye disorder [Recovered/Resolved]
  - Dysphagia [Recovered/Resolved]
  - Wrong technique in drug usage process [None]
  - Nephrolithiasis [Recovered/Resolved]
  - Hepatic enzyme abnormal [None]
  - Apnoea [None]
  - Hepatic function abnormal [None]
  - Colitis [Recovered/Resolved with Sequelae]
  - Flatulence [Not Recovered/Not Resolved]
